APPROVED DRUG PRODUCT: FLUOTREX
Active Ingredient: FLUOCINOLONE ACETONIDE
Strength: 0.01%
Dosage Form/Route: SOLUTION;TOPICAL
Application: A088171 | Product #001
Applicant: SAVAGE LABORATORIES INC DIV ALTANA INC
Approved: Mar 9, 1983 | RLD: No | RS: No | Type: DISCN